FAERS Safety Report 7176892-2 (Version None)
Quarter: 2010Q4

REPORT INFORMATION
  Report Type: 
  Country: None (occurrence: None)
  Receive Date: 20101216
  Receipt Date: 20101216
  Transmission Date: 20110411
  Serious: Yes (Other)
  Sender: FDA-Public Use
  Company Number: None

PATIENT
  Age: 37 Year
  Sex: Female
  Weight: 53.5244 kg

DRUGS (3)
  1. CYMBALTA [Suspect]
     Indication: DEPRESSION
  2. ARMOUR THYROID MEDICATION [Concomitant]
  3. BCP [Concomitant]

REACTIONS (14)
  - DIARRHOEA [None]
  - FEELING ABNORMAL [None]
  - FEELING COLD [None]
  - HEADACHE [None]
  - HOT FLUSH [None]
  - HYPERACUSIS [None]
  - HYPOAESTHESIA ORAL [None]
  - MOOD SWINGS [None]
  - NAUSEA [None]
  - PARAESTHESIA [None]
  - PHOTOPHOBIA [None]
  - SENSORY DISTURBANCE [None]
  - TEARFULNESS [None]
  - WITHDRAWAL SYNDROME [None]
